FAERS Safety Report 5519129-X (Version None)
Quarter: 2007Q4

REPORT INFORMATION
  Report Type: 
  Country: None (occurrence: None)
  Receive Date: 20071114
  Receipt Date: 20071114
  Transmission Date: 20080405
  Serious: No
  Sender: FDA-Public Use
  Company Number: None

PATIENT
  Age: 26 Year
  Sex: Male
  Weight: 72 kg

DRUGS (1)
  1. DALACIN 300MG PFIZER [Suspect]
     Indication: DENTAL DISORDER PROPHYLAXIS
     Dosage: 2 CAPSULES STAT PO
     Route: 048
     Dates: start: 20071111, end: 20071111

REACTIONS (3)
  - DRUG EFFECT DECREASED [None]
  - DYSPEPSIA [None]
  - OESOPHAGEAL INJURY [None]
